FAERS Safety Report 9121804 (Version 1)
Quarter: 2012Q4

REPORT INFORMATION
  Report Type: Spontaneous
  Country: US (occurrence: None)
  Receive Date: 20121026
  Receipt Date: 20121026
  Transmission Date: 20130627
  Serious: No
  Sender: FDA-Public Use
  Company Number: 2012US-004332

PATIENT
  Age: 50 Year
  Sex: Male
  Weight: 74 kg

DRUGS (12)
  1. OMONTYS (PEGINESATIDE) SOLUTION FOR INJECTION [Suspect]
     Dosage: 15 mg,  Q 4 weeks,  Intravenous
     Route: 042
     Dates: start: 20120803, end: 20120803
  2. AMIODARONE HYDROCHLORIDE [Suspect]
     Dosage: 100 mg,  every 2 days,  Oral
Ongoing
     Route: 048
  3. AMIODARONE HYDROCHLORIDE [Suspect]
     Dosage: 200 mg every other day alternating with 100 mg, oral.
  4. DIGOXIN [Suspect]
     Dosage: 125 mcg,  qd,  Oral
Ongoing
     Route: 048
  5. TOPROL XL [Suspect]
     Dosage: 100 mg,  qd,  Oral
Ongoing
     Route: 048
  6. EPOGEN (EPOETIN ALFA) [Concomitant]
  7. PROTONIX [Concomitant]
  8. VERAPAMIL HCI [Concomitant]
  9. COUMADIN [Concomitant]
  10. PREDNISOLONE [Concomitant]
  11. RENAGEL [Concomitant]
  12. PREDNISONE [Concomitant]

REACTIONS (10)
  - Atrial fibrillation [None]
  - Nausea [None]
  - Vomiting [None]
  - Musculoskeletal stiffness [None]
  - Asthenia [None]
  - Dyspnoea [None]
  - Weight decreased [None]
  - Atrioventricular block second degree [None]
  - Toxicity to various agents [None]
  - Bradycardia [None]
